FAERS Safety Report 9458644 (Version 4)
Quarter: 2013Q3

REPORT INFORMATION
  Report Type: Spontaneous
  Country: US (occurrence: None)
  Receive Date: 20130812
  Receipt Date: 20130911
  Transmission Date: 20140515
  Serious: Yes (Other)
  Sender: FDA-Public Use
  Company Number: AUR-APL-2013-06565

PATIENT
  Age: 3 Year
  Sex: Male

DRUGS (3)
  1. LEVETIRACETAM (LEVETIRACETAM) [Suspect]
     Indication: COMPLEX PARTIAL SEIZURES
     Dosage: 10 ML (5 ML 2 IN 1 D)
     Route: 048
     Dates: start: 201210
  2. LEVETIRACETAM (LEVETIRACETAM) [Suspect]
     Indication: CONVULSION
     Dosage: 10 ML (5 ML 2 IN 1 D)
     Route: 048
     Dates: start: 201210
  3. CLARITIN (GLICLAZIDE) [Suspect]
     Indication: PRODUCT USED FOR UNKNOWN INDICATION
     Dates: start: 2012

REACTIONS (13)
  - Petit mal epilepsy [None]
  - Aphasia [None]
  - Sinusitis [None]
  - Product quality issue [None]
  - Condition aggravated [None]
  - Drug ineffective [None]
  - Anticonvulsant drug level below therapeutic [None]
  - Disturbance in attention [None]
  - Product substitution issue [None]
  - Staring [None]
  - Grunting [None]
  - Moaning [None]
  - Inappropriate affect [None]
